FAERS Safety Report 26130069 (Version 1)
Quarter: 2025Q4

REPORT INFORMATION
  Report Type: Spontaneous
  Country: EU (occurrence: EU)
  Receive Date: 20251208
  Receipt Date: 20251208
  Transmission Date: 20260117
  Serious: Yes (Other)
  Sender: ROCHE
  Company Number: EU-ROCHE-10000451433

PATIENT
  Age: 43 Year
  Sex: Male

DRUGS (7)
  1. POLATUZUMAB VEDOTIN [Suspect]
     Active Substance: POLATUZUMAB VEDOTIN
     Indication: Product used for unknown indication
     Route: 065
  2. RITUXIMAB [Suspect]
     Active Substance: RITUXIMAB
     Indication: Product used for unknown indication
     Route: 065
  3. BENDAMUSTINE [Suspect]
     Active Substance: BENDAMUSTINE
     Indication: Product used for unknown indication
     Route: 065
  4. CYCLOPHOSPHAMIDE [Suspect]
     Active Substance: CYCLOPHOSPHAMIDE
     Indication: Product used for unknown indication
     Route: 048
  5. PREDNISONE [Suspect]
     Active Substance: PREDNISONE
     Indication: Product used for unknown indication
     Route: 065
  6. EPIRUBICIN [Suspect]
     Active Substance: EPIRUBICIN
     Indication: Product used for unknown indication
     Route: 065
  7. ONCOVIN [Suspect]
     Active Substance: VINCRISTINE SULFATE
     Indication: Product used for unknown indication
     Route: 065

REACTIONS (7)
  - Acute myocardial infarction [Unknown]
  - Diarrhoea [Unknown]
  - Lymphoma [Unknown]
  - Cytokine release syndrome [Unknown]
  - Lymphadenopathy [Unknown]
  - Lymphadenopathy [Unknown]
  - Retroperitoneal lymphadenopathy [Unknown]
